FAERS Safety Report 10540229 (Version 1)
Quarter: 2014Q4

REPORT INFORMATION
  Report Type: Spontaneous
  Country: US (occurrence: None)
  Receive Date: 20141023
  Receipt Date: 20141023
  Transmission Date: 20150529
  Serious: No
  Sender: FDA-Public Use
  Company Number: None

PATIENT
  Age: 1 Year

DRUGS (1)
  1. SODIUM FLUORIDE. [Suspect]
     Active Substance: SODIUM FLUORIDE
     Indication: DENTAL CARIES
     Dosage: THIN FILM ORAL
     Route: 048
     Dates: start: 20140918, end: 20140922

REACTIONS (1)
  - Urticaria [None]

NARRATIVE: CASE EVENT DATE: 20140922
